FAERS Safety Report 18895042 (Version 1)
Quarter: 2021Q1

REPORT INFORMATION
  Report Type: Spontaneous
  Country: US (occurrence: US)
  Receive Date: 20210215
  Receipt Date: 20210215
  Transmission Date: 20210420
  Serious: Yes (Hospitalization, Other)
  Sender: FDA-Public Use
  Company Number: US-SA-2021SA043000

PATIENT
  Age: 65 Year
  Sex: Male

DRUGS (19)
  1. EZETIMIBE. [Concomitant]
     Active Substance: EZETIMIBE
     Indication: HYPERCHOLESTEROLAEMIA
  2. LANSOPRAZOLE. [Concomitant]
     Active Substance: LANSOPRAZOLE
  3. METFORMIN HYDROCHLORIDE. [Concomitant]
     Active Substance: METFORMIN HYDROCHLORIDE
  4. PLAVIX [Suspect]
     Active Substance: CLOPIDOGREL BISULFATE
     Dosage: UNK
     Dates: start: 20200826
  5. EICOSAPENTAENOIC ACID ETHYL ESTER [Concomitant]
     Active Substance: ICOSAPENT ETHYL
  6. CILOSTAZOL. [Suspect]
     Active Substance: CILOSTAZOL
  7. ROSUVASTATIN. [Suspect]
     Active Substance: ROSUVASTATIN
  8. BEPOTASTINE BESILATE [Concomitant]
     Active Substance: BEPOTASTINE BESYLATE
  9. BETAMETHASONE VALERATE. [Suspect]
     Active Substance: BETAMETHASONE VALERATE
  10. BEZAFIBRATE [Concomitant]
     Active Substance: BEZAFIBRATE
  11. CYSTEINE HYDROCHLORIDE. [Concomitant]
     Active Substance: CYSTEINE HYDROCHLORIDE
  12. METFORMIN [Concomitant]
     Active Substance: METFORMIN HYDROCHLORIDE
  13. EVOLOCUMAB [Suspect]
     Active Substance: EVOLOCUMAB
  14. REPATHA [Suspect]
     Active Substance: EVOLOCUMAB
  15. GLYCYRRHIZIC ACID [Concomitant]
     Active Substance: GLYCYRRHIZIN
  16. TELMISARTAN. [Concomitant]
     Active Substance: TELMISARTAN
     Indication: HYPERTENSION
  17. CLOPIDOGREL BISULFATE. [Suspect]
     Active Substance: CLOPIDOGREL BISULFATE
  18. LINAGLIPTIN [Concomitant]
     Active Substance: LINAGLIPTIN
  19. EPADEL?S [Concomitant]
     Active Substance: ICOSAPENT ETHYL

REACTIONS (9)
  - Erythema [Unknown]
  - Pain [Unknown]
  - Rash [Unknown]
  - Malaise [Unknown]
  - Drug eruption [Unknown]
  - Toxic skin eruption [Unknown]
  - Erythema multiforme [Unknown]
  - Pyrexia [Unknown]
  - Discomfort [Unknown]

NARRATIVE: CASE EVENT DATE: 20200903
